FAERS Safety Report 6753866-4 (Version None)
Quarter: 2010Q2

REPORT INFORMATION
  Report Type: 
  Country: None (occurrence: None)
  Receive Date: 20100520
  Receipt Date: 20090506
  Transmission Date: 20101027
  Serious: Yes (Other)
  Sender: FDA-Public Use
  Company Number: 2009208957

PATIENT
  Sex: Female

DRUGS (6)
  1. PROVERA [Suspect]
     Indication: HORMONE REPLACEMENT THERAPY
     Dates: start: 19850101, end: 19880101
  2. PREMARIN [Suspect]
     Indication: HORMONE REPLACEMENT THERAPY
     Dosage: 0.625 MG ; 1.25 MG
     Dates: start: 19800101, end: 19880101
  3. PREMARIN [Suspect]
     Indication: HORMONE REPLACEMENT THERAPY
     Dosage: 0.625 MG ; 1.25 MG
     Dates: start: 19800101, end: 19880101
  4. TENEX [Concomitant]
  5. FUROSEMIDE [Concomitant]
  6. LORAZEPAM [Concomitant]

REACTIONS (1)
  - BREAST CANCER FEMALE [None]
